FAERS Safety Report 9990034 (Version 1)
Quarter: 2014Q1

REPORT INFORMATION
  Report Type: Report from Study
  Country: US (occurrence: US)
  Receive Date: 20140310
  Receipt Date: 20140310
  Transmission Date: 20141002
  Serious: No
  Sender: FDA-Public Use
  Company Number: US-ABBVIE-13P-163-1131619-00

PATIENT
  Age: 57 Year
  Sex: Female

DRUGS (6)
  1. HUMIRA [Suspect]
     Indication: RHEUMATOID ARTHRITIS
     Dates: start: 20130704
  2. SULFASALAZINE [Suspect]
     Indication: RHEUMATOID ARTHRITIS
     Dates: start: 20130731, end: 20130806
  3. SULFASALAZINE [Suspect]
     Dates: start: 20130731, end: 20130806
  4. METHOTREXATE [Concomitant]
     Indication: RHEUMATOID ARTHRITIS
     Dosage: PILLS
  5. FOLIC ACID [Concomitant]
     Indication: STOMATITIS
     Dosage: X3 DAILY
  6. FOLIC ACID [Concomitant]
     Indication: DRUG THERAPY

REACTIONS (4)
  - Injection site bruising [Not Recovered/Not Resolved]
  - Drug ineffective [Unknown]
  - Injection site pain [Not Recovered/Not Resolved]
  - Arthralgia [Unknown]
